FAERS Safety Report 8402537-7 (Version None)
Quarter: 2012Q1

REPORT INFORMATION
  Report Type: 
  Country: None (occurrence: None)
  Receive Date: 20120323
  Receipt Date: 20110117
  Transmission Date: 20120608
  Serious: Yes (Hospitalization, Other)
  Sender: FDA-Public Use
  Company Number: 163-21880-10092820

PATIENT
  Age: 80 Year
  Sex: Male

DRUGS (54)
  1. ALKERAN [Concomitant]
  2. TESTOSTERONE (TESTOSTERONE) (POULTICE OR PATCH) [Concomitant]
  3. NIACIN (NICOTINIC ACID) (UNKNOWN) [Concomitant]
  4. ZOCOR (SIMVASTATIN) (UNKNOWN) [Concomitant]
  5. SOMA [Concomitant]
  6. ASPIRIN [Concomitant]
  7. DIPHENHYDRAMINE HCL [Concomitant]
  8. DEXAMETHASONE [Concomitant]
  9. COSOPT (COSOPT) (UNKNOWN) [Concomitant]
  10. ZESTRIL [Concomitant]
  11. XANAX [Concomitant]
  12. ZOFRAN [Concomitant]
  13. ENOXAPARIN (ENOXAPARIN) (UNKNOWN) [Concomitant]
  14. ACETAMINOPHEN AND HYDROCODONE BITARTRATE [Concomitant]
  15. REVLIMID [Suspect]
     Indication: MULTIPLE MYELOMA
     Dosage: 5 MG, DAILY X 21 DAYS, OFF 1 WEEK, PO 10 MG, DAILY X 21 DAYS, OFF 1 WEEK, PO
     Route: 048
     Dates: start: 20100422, end: 20101101
  16. REVLIMID [Suspect]
     Indication: MULTIPLE MYELOMA
     Dosage: 5 MG, DAILY X 21 DAYS, OFF 1 WEEK, PO 10 MG, DAILY X 21 DAYS, OFF 1 WEEK, PO
     Route: 048
     Dates: start: 20101102
  17. NORCO (VICODIN) (UNKNOWN) [Concomitant]
  18. DULCOLAX [Concomitant]
  19. FAMOTIDINE [Concomitant]
  20. PHOSPHATE ENEMA (PHOSPHATES ENEMA) (UNKNOWN) [Concomitant]
  21. SLO-NIACIN (NICOTINIC ACID) (UNKNOWN) [Concomitant]
  22. OXYCONTIN [Concomitant]
  23. CALCIUM (CALCIUM) (UNKNOWN) [Concomitant]
  24. MULTIVITAMINS (MULTIVITAMINS) (UNKNOWN) [Concomitant]
  25. GLIPIZIDE [Concomitant]
  26. METFORMIN HCL [Concomitant]
  27. TYLENOL (PARACETAMOL) (UNKNOWN) [Concomitant]
  28. GLUCERNA (GLUCERNA ^ABBOTT^) (UNKNOWN) [Concomitant]
  29. ACETAMINOPHEN (PARACETAMOL) (SUPPOSITORY) [Concomitant]
  30. ONDANSETRON (ONDANSETRON) (UNKNOWN) [Concomitant]
  31. MAGNESIUM (MAGNESIUM) (UNKNOWN) [Concomitant]
  32. LUMIGAN (BIMATOPROST) (UNKNOWN) [Concomitant]
  33. PREDNISONE [Concomitant]
  34. BENAZEPRIL HYDROCHLORIDE [Concomitant]
  35. ASCORBIC ACID (ASCORBIC ACID) (UNKNOWN) [Concomitant]
  36. BIMATOPROST (BIMATOPROST) (SOLUTION) [Concomitant]
  37. PEPCID (FAMOTIDINE) (UNKNOWN) [Concomitant]
  38. DARBEPOETIN ALPHA (DARBEPOETIN ALFA) (UNKNOWN) [Concomitant]
  39. CIPROFLOXACIN [Concomitant]
  40. TEMAZEPAM [Concomitant]
  41. ANDRODERM (TESTOSTERONE) (POULTICE OR PATCH) [Concomitant]
  42. PROTONIX (PANTOPRAZOLE) (UNKNOWN) [Concomitant]
  43. VICODIN [Concomitant]
  44. DOCUSATE SODIUM (DOCUSATE SODIUM) (UNKNOWN) [Concomitant]
  45. DORZOLAMIDE/TIMOLOL (GALENIC/DORZOLAMIDE/TIMOLOL/) (UNKNOWN) [Concomitant]
  46. NORVASC [Concomitant]
  47. INSULIN (INSULIN) (UNKNOWN) [Concomitant]
  48. AMBIEN [Concomitant]
  49. KCL (POTASSIUM CHLORIDE) (UNKNOWN) [Concomitant]
  50. SODIUM CHLORIDE (SODIUM CHLORIDE) (UNKNOWN) [Concomitant]
  51. PANTOPRAZOLE [Concomitant]
  52. MILK OF MAGNESIA (MAGNESIUM HYDROXIDE) (UNKNOWN) [Concomitant]
  53. CETYLPYRIDINIUM (CETYLPYRIDINIUM) (UNKNOWN) [Concomitant]
  54. RED BLOOD CELLS (RED BLOOD CELLS) (UNKNOWN) [Concomitant]

REACTIONS (4)
  - HAEMOGLOBIN DECREASED [None]
  - MULTIPLE MYELOMA [None]
  - PATHOLOGICAL FRACTURE [None]
  - BACTERAEMIA [None]
